FAERS Safety Report 7002074-0 (Version None)
Quarter: 2010Q3

REPORT INFORMATION
  Report Type: 
  Country: None (occurrence: None)
  Receive Date: 20100920
  Receipt Date: 20090922
  Transmission Date: 20110219
  Serious: Yes (Other)
  Sender: FDA-Public Use
  Company Number: US-ASTRAZENECA-2007UW24383

PATIENT
  Age: 38 Year
  Sex: Male
  Weight: 86.2 kg

DRUGS (15)
  1. SEROQUEL [Suspect]
     Indication: SCHIZOPHRENIA
     Dosage: 25-400 MG
     Route: 048
     Dates: start: 20030109, end: 20061101
  2. SEROQUEL [Suspect]
     Indication: NERVOUSNESS
     Dosage: 25-400 MG
     Route: 048
     Dates: start: 20030109, end: 20061101
  3. SEROQUEL [Suspect]
     Indication: DEPRESSION
     Dosage: 25-400 MG
     Route: 048
     Dates: start: 20030109, end: 20061101
  4. ZYPREXA [Suspect]
     Dates: start: 19990401, end: 19990801
  5. GLYBURIDE [Concomitant]
  6. METFORMIN [Concomitant]
  7. INSULIN [Concomitant]
  8. HALDOL [Concomitant]
  9. RISPERDAL [Concomitant]
  10. LISINOPRIL [Concomitant]
  11. DOXYCYCLINE [Concomitant]
  12. ABILIFY [Concomitant]
  13. ZOLOFT [Concomitant]
  14. GEODON [Concomitant]
  15. ERYTHROMYCIN [Concomitant]

REACTIONS (7)
  - DIABETES MELLITUS [None]
  - DRY EYE [None]
  - HALLUCINATION, AUDITORY [None]
  - HIDRADENITIS [None]
  - LOCALISED INFECTION [None]
  - TARDIVE DYSKINESIA [None]
  - VISION BLURRED [None]
